FAERS Safety Report 4389878-8 (Version None)
Quarter: 2004Q2

REPORT INFORMATION
  Report Type: 
  Country: None (occurrence: None)
  Receive Date: 20040630
  Receipt Date: 20040618
  Transmission Date: 20050107
  Serious: Yes (Other)
  Sender: FDA-Public Use
  Company Number: 2004031041

PATIENT
  Age: 3 Year
  Sex: Male

DRUGS (3)
  1. MAGNAMYCIN [Suspect]
     Indication: SEPSIS
     Dosage: 500 MG (250 MG, 2 IN 1 D), INTRAMUSCULAR
     Route: 030
  2. CLAVULIN (AMOXICILLIN TRIHYDRATE, CLAVULANATE POTASSIUM) [Concomitant]
  3. AMIKACIN [Concomitant]

REACTIONS (2)
  - CONVULSION [None]
  - HYPERSENSITIVITY [None]
